FAERS Safety Report 7772035-2 (Version None)
Quarter: 2011Q3

REPORT INFORMATION
  Report Type: 
  Country: None (occurrence: None)
  Receive Date: 20110922
  Receipt Date: 20101026
  Transmission Date: 20111222
  Serious: No
  Sender: FDA-Public Use
  Company Number: US-ASTRAZENECA-2010SE41000

PATIENT
  Age: 17229 Day
  Sex: Male
  Weight: 96.6 kg

DRUGS (5)
  1. SEROQUEL XR [Suspect]
     Indication: MOOD ALTERED
     Route: 048
     Dates: start: 20081106, end: 20081204
  2. WELLBUTRIN [Concomitant]
  3. SEROQUEL XR [Suspect]
     Indication: BIPOLAR DISORDER
     Route: 048
     Dates: start: 20081106, end: 20081204
  4. SEROQUEL XR [Suspect]
     Route: 048
     Dates: start: 20081106, end: 20081204
  5. CELEXA [Concomitant]

REACTIONS (7)
  - MULTIPLE SCLEROSIS [None]
  - APHASIA [None]
  - ARTHRALGIA [None]
  - BURNING SENSATION [None]
  - CHEST PAIN [None]
  - TREMOR [None]
  - ASTHENIA [None]
